FAERS Safety Report 20166930 (Version 2)
Quarter: 2022Q1

REPORT INFORMATION
  Report Type: Spontaneous
  Country: CA (occurrence: CA)
  Receive Date: 20211209
  Receipt Date: 20220119
  Transmission Date: 20220423
  Serious: Yes (Other)
  Sender: FDA-Public Use
  Company Number: CA-PFIZER INC-202101689677

PATIENT
  Age: 67 Year
  Sex: Male
  Weight: 54 kg

DRUGS (4)
  1. RUXIENCE [Suspect]
     Active Substance: RITUXIMAB-PVVR
     Indication: Rheumatoid arthritis
     Dosage: 1000 MG, DAY 1 AND DAY 15
     Route: 042
     Dates: start: 20201221, end: 20210104
  2. PLAQUENIL [Concomitant]
     Active Substance: HYDROXYCHLOROQUINE SULFATE
     Dosage: 400 MG, 1X/DAY
     Dates: start: 2018
  3. FOLIC ACID [Concomitant]
     Active Substance: FOLIC ACID
     Dosage: 5 MG, WEEKLY
     Dates: start: 2018
  4. METHOTREXATE [Concomitant]
     Active Substance: METHOTREXATE
     Dosage: 10 MG
     Dates: start: 2020

REACTIONS (1)
  - Cataract [Unknown]
